FAERS Safety Report 18166177 (Version 2)
Quarter: 2020Q3

REPORT INFORMATION
  Report Type: Report from Study
  Country: US (occurrence: US)
  Receive Date: 20200818
  Receipt Date: 20200918
  Transmission Date: 20201103
  Serious: No
  Sender: FDA-Public Use
  Company Number: NVSC2020US227147

PATIENT
  Sex: Female

DRUGS (1)
  1. ENTRESTO [Suspect]
     Active Substance: SACUBITRIL\VALSARTAN
     Indication: PRODUCT USED FOR UNKNOWN INDICATION
     Dosage: 50 MG, QD (24.26 MG)
     Route: 048

REACTIONS (6)
  - Dyspnoea [Unknown]
  - Malaise [Unknown]
  - Decreased appetite [Unknown]
  - Nephropathy [Unknown]
  - Incorrect dosage administered [Unknown]
  - Weight decreased [Unknown]
